FAERS Safety Report 17403064 (Version 1)
Quarter: 2020Q1

REPORT INFORMATION
  Report Type: Spontaneous
  Country: US (occurrence: US)
  Receive Date: 20200211
  Receipt Date: 20200211
  Transmission Date: 20200409
  Serious: No
  Sender: FDA-Public Use
  Company Number: US-PERRIGO-19US008908

PATIENT
  Sex: Female

DRUGS (2)
  1. TRETINOIN. [Suspect]
     Active Substance: TRETINOIN
     Indication: ROUTINE HEALTH MAINTENANCE
     Dosage: SMALL AMOUNT, NIGHTLY
     Route: 061
     Dates: start: 201901, end: 201905
  2. TRETINOIN. [Suspect]
     Active Substance: TRETINOIN
     Indication: ACNE

REACTIONS (4)
  - Drug ineffective for unapproved indication [Unknown]
  - Seborrhoea [Not Recovered/Not Resolved]
  - Dilated pores [Not Recovered/Not Resolved]
  - Skin texture abnormal [Not Recovered/Not Resolved]

NARRATIVE: CASE EVENT DATE: 201901
